FAERS Safety Report 5269093-6 (Version None)
Quarter: 2007Q1

REPORT INFORMATION
  Report Type: 
  Country: None (occurrence: None)
  Receive Date: 20070319
  Receipt Date: 20070308
  Transmission Date: 20070707
  Serious: Yes (Hospitalization)
  Sender: FDA-Public Use
  Company Number: GB-ROCHE-487484

PATIENT
  Age: 44 Year
  Sex: Female
  Weight: 98.4 kg

DRUGS (1)
  1. XENICAL [Suspect]
     Indication: OBESITY
     Route: 048
     Dates: start: 20070219

REACTIONS (4)
  - CHILLS [None]
  - PAIN [None]
  - PANCREATITIS [None]
  - PYREXIA [None]
